FAERS Safety Report 4616378-X (Version None)
Quarter: 2005Q1

REPORT INFORMATION
  Report Type: 
  Country: None (occurrence: None)
  Receive Date: 20050321
  Receipt Date: 20050308
  Transmission Date: 20050727
  Serious: Yes (Hospitalization, Other)
  Sender: FDA-Public Use
  Company Number: 2004238113US

PATIENT
  Age: 76 Year
  Sex: Female
  Weight: 87.07 kg

DRUGS (4)
  1. CELEBREX [Suspect]
     Indication: JOINT SWELLING
     Dosage: 200 MG (1 IN 1 D), ORAL
     Route: 048
     Dates: end: 20040801
  2. CELEBREX [Suspect]
     Indication: OSTEOPOROSIS
     Dosage: 200 MG (1 IN 1 D), ORAL
     Route: 048
     Dates: end: 20040801
  3. CELEBREX [Suspect]
     Indication: SYSTEMIC LUPUS ERYTHEMATOSUS
     Dosage: 200 MG (1 IN 1 D), ORAL
     Route: 048
     Dates: end: 20040801
  4. VITAMINS (VITAMINS) [Concomitant]

REACTIONS (23)
  - ABDOMINAL DISTENSION [None]
  - ABDOMINAL PAIN UPPER [None]
  - ASTHENIA [None]
  - CATARACT OPERATION [None]
  - DEHYDRATION [None]
  - DIZZINESS [None]
  - DYSPNOEA [None]
  - GLAUCOMA [None]
  - HYPOAESTHESIA [None]
  - IMPAIRED WORK ABILITY [None]
  - INSOMNIA [None]
  - MALAISE [None]
  - MOVEMENT DISORDER [None]
  - MULTIPLE SCLEROSIS [None]
  - OEDEMA PERIPHERAL [None]
  - PYREXIA [None]
  - RENAL DISORDER [None]
  - RENAL PAIN [None]
  - STOMACH DISCOMFORT [None]
  - SYSTEMIC LUPUS ERYTHEMATOSUS [None]
  - VISUAL DISTURBANCE [None]
  - WEIGHT DECREASED [None]
  - WEIGHT INCREASED [None]
